FAERS Safety Report 7448163-8 (Version None)
Quarter: 2011Q2

REPORT INFORMATION
  Report Type: 
  Country: None (occurrence: None)
  Receive Date: 20110429
  Receipt Date: 20100824
  Transmission Date: 20111010
  Serious: No
  Sender: FDA-Public Use
  Company Number: US-ASTRAZENECA-2008UW25600

PATIENT
  Age: 31 Year
  Sex: Male
  Weight: 77.1 kg

DRUGS (5)
  1. HYDROCHLOROTHIAZIDE [Concomitant]
  2. NEXIUM [Suspect]
     Indication: GASTROOESOPHAGEAL REFLUX DISEASE
     Route: 048
     Dates: start: 20080801
  3. MYLANTA [Concomitant]
  4. NEXIUM [Suspect]
     Route: 048
     Dates: start: 20080401, end: 20080801
  5. NEXIUM [Suspect]
     Route: 048

REACTIONS (5)
  - DRUG INEFFECTIVE [None]
  - GASTROOESOPHAGEAL REFLUX DISEASE [None]
  - DYSPHAGIA [None]
  - DRUG DOSE OMISSION [None]
  - ANXIETY [None]
